FAERS Safety Report 20152809 (Version 1)
Quarter: 2021Q4

REPORT INFORMATION
  Report Type: Spontaneous
  Country: CO (occurrence: CO)
  Receive Date: 20211206
  Receipt Date: 20211206
  Transmission Date: 20220303
  Serious: No
  Sender: FDA-Public Use
  Company Number: CO-PFIZER INC-2021584988

PATIENT
  Age: 12 Year
  Sex: Male

DRUGS (1)
  1. GENOTROPIN [Suspect]
     Active Substance: SOMATROPIN
     Indication: Growth hormone deficiency
     Dosage: 0.8 MG, UNK
     Route: 058
     Dates: start: 20210514

REACTIONS (1)
  - Device mechanical issue [Unknown]

NARRATIVE: CASE EVENT DATE: 20210520
